FAERS Safety Report 4569908-0 (Version None)
Quarter: 2005Q1

REPORT INFORMATION
  Report Type: 
  Country: None (occurrence: None)
  Receive Date: 20050118
  Receipt Date: 20041111
  Transmission Date: 20050727
  Serious: Yes (Hospitalization, Other)
  Sender: FDA-Public Use
  Company Number: HQWYE455212NOV04

PATIENT
  Sex: Female

DRUGS (4)
  1. PREMPRO [Suspect]
  2. ALESSE [Suspect]
  3. ESTRATEST [Suspect]
  4. PREMARIN [Suspect]

REACTIONS (2)
  - BREAST CANCER [None]
  - CEREBROVASCULAR ACCIDENT [None]
